FAERS Safety Report 22593198 (Version 1)
Quarter: 2023Q2

REPORT INFORMATION
  Report Type: Report from Study
  Country: US (occurrence: US)
  Receive Date: 20230613
  Receipt Date: 20230613
  Transmission Date: 20230722
  Serious: Yes (Other)
  Sender: FDA-Public Use
  Company Number: US-KOREA IPSEN Pharma-2023-06272

PATIENT
  Age: 56 Year
  Sex: Male

DRUGS (1)
  1. SOMATULINE DEPOT [Suspect]
     Active Substance: LANREOTIDE ACETATE
     Indication: Carcinoid tumour
     Dosage: BUTTOCKS, DEEP SQ 120 MG/0.5 ML SOLUTION
     Route: 058
     Dates: start: 201607

REACTIONS (8)
  - Malignant neoplasm progression [Recovering/Resolving]
  - Incorrect drug administration rate [Unknown]
  - Sticky skin [Unknown]
  - Hordeolum [Unknown]
  - Abdominal pain [Recovered/Resolved]
  - Flushing [Recovering/Resolving]
  - Heart rate irregular [Unknown]
  - Diarrhoea [Recovering/Resolving]

NARRATIVE: CASE EVENT DATE: 20230501
